FAERS Safety Report 8549998-0 (Version None)
Quarter: 2012Q3

REPORT INFORMATION
  Report Type: 
  Country: None (occurrence: None)
  Receive Date: 20120730
  Receipt Date: 20120723
  Transmission Date: 20120928
  Serious: Yes (Hospitalization, Disabling, Other)
  Sender: FDA-Public Use
  Company Number: NZ-B.I. PHARMACEUTICALS,INC./RIDGEFIELD-2012-AU-00777AU

PATIENT
  Sex: Male
  Weight: 80 kg

DRUGS (5)
  1. PRADAXA [Suspect]
     Dosage: 300 MG
     Dates: start: 20110801
  2. METOPROLOL SUCCINATE [Concomitant]
     Dosage: 23.75 MG
     Dates: end: 20120701
  3. LUMIGAN EYEDROPS [Concomitant]
     Dosage: 0.3 MG/ML
  4. PYRIDOXINE HCL [Concomitant]
     Dosage: 50 MG
  5. LIPITOR [Concomitant]
     Dosage: 40 MG

REACTIONS (5)
  - MUSCULAR WEAKNESS [None]
  - CEREBRAL INFARCTION [None]
  - PARAESTHESIA [None]
  - APHASIA [None]
  - MOTOR DYSFUNCTION [None]
